FAERS Safety Report 6990721-9 (Version None)
Quarter: 2010Q3

REPORT INFORMATION
  Report Type: 
  Country: None (occurrence: None)
  Receive Date: 20100916
  Receipt Date: 20100720
  Transmission Date: 20110219
  Serious: Yes (Other)
  Sender: FDA-Public Use
  Company Number: US-PFIZER INC-2010090951

PATIENT
  Sex: Female

DRUGS (2)
  1. LYRICA [Suspect]
     Dosage: UNK
     Route: 048
  2. BETAMETHASONE DIPROPIONATE/CLOTRIMAZOLE [Suspect]
     Indication: DRY SKIN
     Dosage: UNK
     Route: 061

REACTIONS (2)
  - HEART RATE IRREGULAR [None]
  - OEDEMA PERIPHERAL [None]
